FAERS Safety Report 20292176 (Version 1)
Quarter: 2022Q1

REPORT INFORMATION
  Report Type: Spontaneous
  Country: US (occurrence: None)
  Receive Date: 20220104
  Receipt Date: 20220104
  Transmission Date: 20220423
  Serious: No
  Sender: FDA-Public Use
  Company Number: None

PATIENT
  Sex: Female

DRUGS (11)
  1. LETAIRIS [Suspect]
     Active Substance: AMBRISENTAN
     Indication: Essential hypertension
     Dosage: FREQUENCY : DAILY;?
     Route: 048
  2. CILOSTAZOL [Concomitant]
     Active Substance: CILOSTAZOL
  3. PREDNISONE [Concomitant]
     Active Substance: PREDNISONE
  4. COLCRYS [Concomitant]
     Active Substance: COLCHICINE
  5. ADEMPAS [Concomitant]
     Active Substance: RIOCIGUAT
  6. LEVOCETIRIZINE DIHYDROCHL [Concomitant]
  7. FUROSEMIDE [Concomitant]
     Active Substance: FUROSEMIDE
  8. LOVASTATIN [Concomitant]
     Active Substance: LOVASTATIN
  9. VALSARTAN/HYDROCHLOROTHIA [Concomitant]
  10. TYLENOL EXTRA STRENGTH [Concomitant]
     Active Substance: ACETAMINOPHEN
  11. LEVOTHYROXINE SODIUM [Concomitant]
     Active Substance: LEVOTHYROXINE SODIUM

REACTIONS (3)
  - Therapy interrupted [None]
  - Pulmonary oedema [None]
  - Insurance issue [None]
